FAERS Safety Report 16882117 (Version 1)
Quarter: 2019Q4

REPORT INFORMATION
  Report Type: Spontaneous
  Country: US (occurrence: US)
  Receive Date: 20191003
  Receipt Date: 20191003
  Transmission Date: 20200122
  Serious: Yes (Disabling)
  Sender: FDA-Public Use
  Company Number: None

PATIENT
  Age: 52 Year
  Sex: Female
  Weight: 72 kg

DRUGS (9)
  1. LOW DOSE MULTI-VITAMIN WITH MINERALS [Concomitant]
  2. VITAMIN B COMPLEX [Concomitant]
     Active Substance: CYANOCOBALAMIN\DEXPANTHENOL\NIACINAMIDE\PYRIDOXINE HYDROCHLORIDE\RIBOFLAVIN 5^-PHOSPHATE SODIUM\THIAMINE HYDROCHLORIDE\VITAMIN B COMPLEX
  3. RHOPRESSA [Suspect]
     Active Substance: NETARSUDIL MESYLATE
     Indication: INTRAOCULAR PRESSURE INCREASED
     Dosage: ?          QUANTITY:1 DROP(S);?
     Route: 047
     Dates: start: 20190927, end: 20191002
  4. VITAMIN D [Concomitant]
     Active Substance: VITAMIN D NOS
  5. LUTEIN [Concomitant]
     Active Substance: LUTEIN
  6. ZIOPTAN [Concomitant]
     Active Substance: TAFLUPROST
  7. CURCUMIN [Concomitant]
     Active Substance: CURCUMIN
  8. BLACK COHOSH [Concomitant]
     Active Substance: BLACK COHOSH
  9. N-ACETYL CYSTEINE [Concomitant]
     Active Substance: ACETYLCYSTEINE

REACTIONS (6)
  - Visual acuity reduced [None]
  - Impaired work ability [None]
  - Vision blurred [None]
  - Instillation site erythema [None]
  - Therapy cessation [None]
  - Nausea [None]

NARRATIVE: CASE EVENT DATE: 20190927
